FAERS Safety Report 6028494-9 (Version None)
Quarter: 2009Q1

REPORT INFORMATION
  Report Type: 
  Country: None (occurrence: None)
  Receive Date: 20090106
  Receipt Date: 20081229
  Transmission Date: 20090719
  Serious: Yes (Hospitalization, Other)
  Sender: FDA-Public Use
  Company Number: IL-NOVOPROD-282765

PATIENT
  Age: 67 Year
  Sex: Male
  Weight: 80 kg

DRUGS (13)
  1. NOVOLOG MIX 70/30 [Suspect]
     Indication: INSULIN-REQUIRING TYPE 2 DIABETES MELLITUS
     Dosage: 50 IU, QD
     Dates: start: 20060101
  2. METFORMIN HCL [Concomitant]
     Dosage: 850 MG, BID
  3. OMEPRAZOLE [Concomitant]
     Dosage: 20 MG, QD
  4. SIMVASTATIN [Concomitant]
     Dosage: 40 MG, QD
  5. NIFEDIPINE [Concomitant]
     Dosage: 30 MG, TID
  6. FERROUS SULPHATE                   /00023503/ [Concomitant]
     Dosage: 325 MG, QD
  7. DOXAZOSIN MESYLATE [Concomitant]
     Dosage: 4 MG, BID
  8. RAMIPRIL [Concomitant]
     Dosage: 20 MG, BID
  9. PLAVIX [Concomitant]
     Dosage: 75 MG, QD
  10. BISOPROLOL FUMARATE [Concomitant]
     Dosage: 2.5 MG, QD
  11. ASPIRIN [Concomitant]
     Dosage: 100 MG, QD
  12. BEZAFIBRATE [Concomitant]
     Dosage: 400 MG, QD
  13. LOSARTAN [Concomitant]
     Dosage: 50 MG, QD

REACTIONS (3)
  - CARDIAC OPERATION [None]
  - DEVICE MALFUNCTION [None]
  - POSTOPERATIVE WOUND INFECTION [None]
